FAERS Safety Report 17608637 (Version 2)
Quarter: 2020Q2

REPORT INFORMATION
  Report Type: Spontaneous
  Country: JP (occurrence: JP)
  Receive Date: 20200401
  Receipt Date: 20200417
  Transmission Date: 20200713
  Serious: Yes (Hospitalization)
  Sender: FDA-Public Use
  Company Number: JP-FERRINGPH-2020FE02129

PATIENT
  Age: 79 Year
  Sex: Male

DRUGS (6)
  1. GLACTIV [Concomitant]
     Active Substance: SITAGLIPTIN
     Route: 048
  2. CILOSTAZOL. [Concomitant]
     Active Substance: CILOSTAZOL
     Route: 048
  3. AMLODIPINE [Concomitant]
     Active Substance: AMLODIPINE BESYLATE
     Route: 048
  4. MINIRINMELT [Suspect]
     Active Substance: DESMOPRESSIN ACETATE
     Indication: ENURESIS
     Route: 048
  5. FLUVASTATIN [Concomitant]
     Active Substance: FLUVASTATIN SODIUM
     Route: 048
  6. GLICLAZIDE [Interacting]
     Active Substance: GLICLAZIDE
     Route: 048

REACTIONS (2)
  - Eosinophil count increased [Recovering/Resolving]
  - Pneumonia [Recovering/Resolving]

NARRATIVE: CASE EVENT DATE: 202003
